FAERS Safety Report 10251968 (Version 1)
Quarter: 2014Q2

REPORT INFORMATION
  Report Type: Spontaneous
  Country: GB (occurrence: GB)
  Receive Date: 20140623
  Receipt Date: 20140623
  Transmission Date: 20141212
  Serious: Yes (Life-Threatening, Hospitalization, Other)
  Sender: FDA-Public Use
  Company Number: 2014SP003187

PATIENT
  Age: 17 Year
  Sex: Male
  Weight: 50.4 kg

DRUGS (16)
  1. PAMIDRONATE [Suspect]
     Indication: FRACTURE
     Route: 042
     Dates: start: 20140120, end: 20140121
  2. PAMIDRONATE [Suspect]
     Indication: OSTEOPENIA
     Route: 042
     Dates: start: 20140120, end: 20140121
  3. ALIMEMAZINE [Concomitant]
  4. BACLOFEN [Concomitant]
     Indication: GASTROINTESTINAL DISORDER
  5. BACLOFEN [Concomitant]
     Indication: CEREBRAL PALSY
  6. DIAZEPAM [Concomitant]
     Indication: CEREBRAL PALSY
  7. DIAZEPAM [Concomitant]
     Indication: GASTROINTESTINAL DISORDER
  8. DOMPERIDONE [Concomitant]
     Indication: CEREBRAL PALSY
  9. DOMPERIDONE [Concomitant]
     Indication: GASTROINTESTINAL DISORDER
  10. MACROGOL [Concomitant]
     Indication: CEREBRAL PALSY
  11. MACROGOL [Concomitant]
     Indication: GASTROINTESTINAL DISORDER
  12. OMEPRAZOLE [Concomitant]
  13. SALBUTAMOL [Concomitant]
  14. SENNA /00571901/ [Concomitant]
     Indication: CEREBRAL PALSY
  15. SENNA /00571901/ [Concomitant]
     Indication: GASTROINTESTINAL DISORDER
  16. TIZANIDINE [Concomitant]

REACTIONS (1)
  - Gastric perforation [Recovered/Resolved]
